FAERS Safety Report 7448258-9 (Version None)
Quarter: 2011Q2

REPORT INFORMATION
  Report Type: 
  Country: None (occurrence: None)
  Receive Date: 20110429
  Receipt Date: 20100422
  Transmission Date: 20111010
  Serious: No
  Sender: FDA-Public Use
  Company Number: US-ASTRAZENECA-2010SE18058

PATIENT
  Age: 83 Year
  Sex: Female

DRUGS (1)
  1. NEXIUM [Suspect]
     Dosage: 2 NEXIUM PER DAY
     Route: 048
     Dates: start: 20010101

REACTIONS (3)
  - HIATUS HERNIA [None]
  - IRRITABLE BOWEL SYNDROME [None]
  - EROSIVE OESOPHAGITIS [None]
